FAERS Safety Report 4902202-4 (Version None)
Quarter: 2006Q1

REPORT INFORMATION
  Report Type: 
  Country: None (occurrence: None)
  Receive Date: 20060207
  Receipt Date: 20051222
  Transmission Date: 20060701
  Serious: Yes (Hospitalization)
  Sender: FDA-Public Use
  Company Number: DE-ROCHE-430000

PATIENT
  Age: 67 Year
  Sex: Female
  Weight: 82 kg

DRUGS (11)
  1. KEVATRIL [Suspect]
     Indication: ANTIEMETIC SUPPORTIVE CARE
     Route: 042
     Dates: start: 20050805, end: 20050805
  2. KEVATRIL [Suspect]
     Route: 042
     Dates: start: 20050806, end: 20050807
  3. FLUOROURACIL [Suspect]
     Indication: DRUG USE FOR UNKNOWN INDICATION
     Route: 065
  4. FLUOROURACIL [Suspect]
     Dosage: REDUCED DOSE
     Route: 065
  5. FLUOROURACIL [Suspect]
     Dosage: 1ST CYCLE OF NEW DRUG REGIMEN - ^CMF^ DAY 1 + 8
     Route: 065
  6. CYCLOPHOSPHAMIDE [Suspect]
     Indication: DRUG USE FOR UNKNOWN INDICATION
     Route: 065
  7. CYCLOPHOSPHAMIDE [Suspect]
     Dosage: REDUCED DOSE
     Route: 065
  8. CYCLOPHOSPHAMIDE [Suspect]
     Dosage: 1ST CYCLE OF NEW REGIMEN - ^CMF^ DAY 1 + 8
     Route: 065
  9. METHOTREXATE [Suspect]
     Indication: DRUG USE FOR UNKNOWN INDICATION
     Dosage: DAY 1 + 8
     Route: 065
  10. EPIRUBICIN [Suspect]
     Indication: DRUG USE FOR UNKNOWN INDICATION
     Route: 065
  11. EPIRUBICIN [Suspect]
     Dosage: REDUCED DOSE
     Route: 065

REACTIONS (3)
  - HAEMATOCRIT DECREASED [None]
  - HAEMOGLOBIN DECREASED [None]
  - PANCYTOPENIA [None]
